APPROVED DRUG PRODUCT: SEROQUEL
Active Ingredient: QUETIAPINE FUMARATE
Strength: EQ 25MG BASE
Dosage Form/Route: TABLET;ORAL
Application: N020639 | Product #001 | TE Code: AB
Applicant: CHEPLAPHARM ARZNEIMITTEL GMBH
Approved: Sep 26, 1997 | RLD: Yes | RS: Yes | Type: RX